FAERS Safety Report 24747635 (Version 1)
Quarter: 2024Q4

REPORT INFORMATION
  Report Type: Spontaneous
  Country: JP (occurrence: JP)
  Receive Date: 20241218
  Receipt Date: 20241218
  Transmission Date: 20250115
  Serious: Yes (Death, Life-Threatening, Other)
  Sender: PFIZER
  Company Number: JP-PFIZER INC-PV202400161774

PATIENT
  Age: 63 Year
  Sex: Male
  Weight: 87 kg

DRUGS (23)
  1. INLYTA [Suspect]
     Active Substance: AXITINIB
     Indication: Renal cell carcinoma
     Dosage: 5 MG, 2X/DAY
     Route: 048
     Dates: start: 20240628, end: 20240629
  2. BAVENCIO [Suspect]
     Active Substance: AVELUMAB
     Indication: Renal cell carcinoma
     Dosage: 10 MG/KG/TIME BY INTRAVENOUS DRIP
     Route: 042
     Dates: start: 20240628, end: 20240628
  3. POLARAMINE [Concomitant]
     Active Substance: DEXCHLORPHENIRAMINE MALEATE
     Dosage: UNK
  4. CALONAL [Concomitant]
     Active Substance: ACETAMINOPHEN
     Dosage: UNK
  5. GLYCOSAMINOGLYCANS [Concomitant]
     Active Substance: GLYCOSAMINOGLYCANS
     Dosage: UNK
  6. MYOCOR [GLYCERYL TRINITRATE] [Concomitant]
     Dosage: SPRAY
  7. NOREPINEPHRINE [Concomitant]
     Active Substance: NOREPINEPHRINE\NOREPINEPHRINE BITARTRATE
     Dosage: INCREASED TO 12 ML/H
  8. OLPRINONE HYDROCHLORIDE [Concomitant]
     Active Substance: OLPRINONE HYDROCHLORIDE
     Dosage: UNK
  9. HEPARIN SODIUM [Concomitant]
     Active Substance: HEPARIN SODIUM
     Dosage: UNK
  10. OMEPRAZOLE SODIUM [Concomitant]
     Active Substance: OMEPRAZOLE SODIUM
     Dosage: UNK
  11. SOLU-CORTEF [Concomitant]
     Active Substance: HYDROCORTISONE SODIUM SUCCINATE
     Indication: Adverse event
     Dosage: 1000 MG
  12. MEROPENEM [Concomitant]
     Active Substance: MEROPENEM
     Dosage: UNK
  13. ALBUMINAR [Concomitant]
     Active Substance: ALBUMIN HUMAN
     Dosage: UNK
  14. THROMBOMODULIN ALFA [Concomitant]
     Active Substance: THROMBOMODULIN ALFA
     Indication: Disseminated intravascular coagulation
     Dosage: UNK
  15. LANDIOLOL HYDROCHLORIDE [Concomitant]
     Active Substance: LANDIOLOL HYDROCHLORIDE
     Dosage: UNK
  16. MORPHINE HYDROCHLORIDE [Concomitant]
     Active Substance: MORPHINE HYDROCHLORIDE
     Dosage: UNK
  17. POTASSIUM ASPARTATE [Concomitant]
     Active Substance: POTASSIUM ASPARTATE
     Dosage: UNK
  18. TOLVAPTAN [Concomitant]
     Active Substance: TOLVAPTAN
     Dosage: UNK
  19. MEYLON [Concomitant]
     Active Substance: SODIUM BICARBONATE
     Indication: Metabolic acidosis
     Dosage: UNK
  20. VOLUVEN [Concomitant]
     Active Substance: HYDROXYETHYL STARCH 130/0.4
     Dosage: UNK
  21. VONOPRAZAN FUMARATE [Concomitant]
     Active Substance: VONOPRAZAN FUMARATE
     Dosage: 20 MG
     Route: 048
     Dates: start: 20240630
  22. ASPIRIN [Concomitant]
     Active Substance: ASPIRIN
     Dosage: ENTERIC COATED, 100 MG
     Dates: start: 20240630
  23. EFIENT OD [Concomitant]
     Dosage: 20 MG
     Route: 048
     Dates: start: 20240630

REACTIONS (6)
  - Myocarditis [Fatal]
  - Neoplasm progression [Fatal]
  - Cardiac arrest [Unknown]
  - Respiratory arrest [Unknown]
  - Seizure [Unknown]
  - Stomatitis [Recovering/Resolving]

NARRATIVE: CASE EVENT DATE: 20240601
